FAERS Safety Report 17434849 (Version 1)
Quarter: 2020Q1

REPORT INFORMATION
  Report Type: Spontaneous
  Country: US (occurrence: US)
  Receive Date: 20200204
  Receipt Date: 20200204
  Transmission Date: 20200409
  Serious: Yes (Other)
  Sender: FDA-Public Use
  Company Number: None

PATIENT
  Age: 37 Year
  Sex: Male
  Weight: 113.85 kg

DRUGS (1)
  1. QUETIAPINE XR [Suspect]
     Active Substance: QUETIAPINE
     Indication: MAJOR DEPRESSION
     Route: 048
     Dates: start: 201610

REACTIONS (4)
  - Pharyngeal swelling [None]
  - Dyspnoea [None]
  - Product substitution issue [None]
  - Dysphagia [None]

NARRATIVE: CASE EVENT DATE: 20170509
